FAERS Safety Report 9069427 (Version 1)
Quarter: 2013Q1

REPORT INFORMATION
  Report Type: Report from Study
  Country: US (occurrence: US)
  Receive Date: 20130131
  Receipt Date: 20130131
  Transmission Date: 20140127
  Serious: No
  Sender: FDA-Public Use
  Company Number: US-ABBOTT-12P-163-1000549-00

PATIENT
  Age: 54 Year
  Sex: Female

DRUGS (4)
  1. HUMIRA [Suspect]
     Indication: RHEUMATOID ARTHRITIS
     Route: 058
     Dates: start: 201202
  2. HUMIRA [Suspect]
     Route: 058
     Dates: start: 20120924
  3. MULTIVITAMIN [Concomitant]
     Indication: VITAMIN SUPPLEMENTATION
  4. CALCIUM [Concomitant]
     Indication: MINERAL SUPPLEMENTATION

REACTIONS (6)
  - Musculoskeletal stiffness [Unknown]
  - Pneumonia [Not Recovered/Not Resolved]
  - Injection site erythema [Unknown]
  - Injection site swelling [Unknown]
  - Injection site pruritus [Unknown]
  - Arthritis [Unknown]
